FAERS Safety Report 26176541 (Version 1)
Quarter: 2025Q4

REPORT INFORMATION
  Report Type: Spontaneous
  Country: CN (occurrence: CN)
  Receive Date: 20251218
  Receipt Date: 20251218
  Transmission Date: 20260117
  Serious: Yes (Other)
  Sender: NOVO NORDISK
  Company Number: CN-NOVOPROD-1587137

PATIENT
  Age: 29 Year
  Sex: Female

DRUGS (12)
  1. LEVEMIR [Suspect]
     Active Substance: INSULIN DETEMIR
     Indication: Gestational diabetes
     Dosage: 12 IU, QD (BEFORE BEDTIME)(DOSAGE ADJUSTED ACCORDING OF THE 7 BLOOD GLUCOSE TESTS )
     Route: 058
  2. DEXAMETHASONE [Concomitant]
     Active Substance: DEXAMETHASONE
     Indication: Maternal therapy to enhance foetal lung maturity
     Dosage: UNK
  3. MAGNESIUM SULFATE [Concomitant]
     Active Substance: MAGNESIUM SULFATE
     Indication: Pre-eclampsia
     Dosage: UNK
     Route: 042
  4. MAGNESIUM SULFATE [Concomitant]
     Active Substance: MAGNESIUM SULFATE
     Indication: Prophylaxis
  5. LABETALOL [Concomitant]
     Active Substance: LABETALOL
     Indication: Gestational hypertension
     Dosage: UNK
  6. NIFEDIPINE SUSTAINED RELEASE TABLETS (I) [Concomitant]
     Indication: Gestational hypertension
     Dosage: UNK
  7. CALCIUM [Concomitant]
     Active Substance: CALCIUM
     Indication: Hypocalcaemia
     Dosage: UNK
  8. OXYTOCIN [Concomitant]
     Active Substance: OXYTOCIN
     Dosage: 10 IU (INTRAVENOUS DRIP)
     Route: 042
  9. OXYTOCIN [Concomitant]
     Active Substance: OXYTOCIN
     Indication: Prophylaxis
     Dosage: 20 IU
  10. CARBETOCIN [Concomitant]
     Active Substance: CARBETOCIN
     Dosage: 100 ?G (SLOW INTRAVENOUS INJECTION)
     Route: 042
  11. HEPARIN [Concomitant]
     Active Substance: HEPARIN SODIUM
     Indication: Thrombosis prophylaxis
     Dosage: UNK
  12. ALBUMIN HUMAN [Concomitant]
     Active Substance: ALBUMIN HUMAN
     Indication: Hypoproteinaemia
     Dosage: UNK

REACTIONS (2)
  - Premature separation of placenta [Unknown]
  - Maternal exposure during pregnancy [Recovered/Resolved]

NARRATIVE: CASE EVENT DATE: 20240713
